FAERS Safety Report 9857311 (Version 2)
Quarter: 2014Q1

REPORT INFORMATION
  Report Type: Spontaneous
  Country: US (occurrence: US)
  Receive Date: 20140130
  Receipt Date: 20140130
  Transmission Date: 20141002
  Serious: Yes (Other)
  Sender: FDA-Public Use
  Company Number: US-GE HEALTHCARE MEDICAL DIAGNOSTICS-OSCN-PR-0906S-0305

PATIENT
  Age: 45 Year
  Sex: Male

DRUGS (4)
  1. GADOLINIUM (UNSPECIFIED) [Suspect]
     Indication: PRODUCT USED FOR UNKNOWN INDICATION
     Route: 042
     Dates: start: 20040818, end: 20040818
  2. MAGNEVIST [Suspect]
     Indication: HEADACHE
     Route: 042
     Dates: start: 20040427, end: 20040427
  3. MAGNEVIST [Suspect]
     Indication: EYE MOVEMENT DISORDER
     Route: 042
     Dates: start: 20040611, end: 20040611
  4. MAGNEVIST [Suspect]
     Indication: BRAIN NEOPLASM MALIGNANT
     Route: 042
     Dates: start: 20041011, end: 20041011

REACTIONS (1)
  - Nephrogenic systemic fibrosis [Not Recovered/Not Resolved]
